FAERS Safety Report 8286684-9 (Version None)
Quarter: 2012Q2

REPORT INFORMATION
  Report Type: 
  Country: None (occurrence: None)
  Receive Date: 20120416
  Receipt Date: 20120402
  Transmission Date: 20120825
  Serious: Yes (Other)
  Sender: FDA-Public Use
  Company Number: US-SANOFI-AVENTIS-2012SA023451

PATIENT
  Age: 66 Year
  Sex: Female
  Weight: 68 kg

DRUGS (10)
  1. PLAVIX [Suspect]
     Route: 048
  2. PLAVIX [Suspect]
     Indication: VASCULAR OCCLUSION
     Route: 048
     Dates: start: 20070101
  3. PLAVIX [Suspect]
     Route: 048
     Dates: start: 20070101
  4. PLAVIX [Suspect]
     Route: 048
  5. ARICEPT [Concomitant]
  6. PLAVIX [Suspect]
     Route: 048
  7. PLAVIX [Suspect]
     Indication: CAROTID ARTERY OCCLUSION
     Route: 048
     Dates: start: 20070101
  8. PLAVIX [Suspect]
     Route: 048
  9. PLAVIX [Suspect]
     Route: 048
  10. PLAVIX [Suspect]
     Route: 048

REACTIONS (3)
  - HAEMATOCHEZIA [None]
  - CONTUSION [None]
  - CEREBRAL ARTERY OCCLUSION [None]
